FAERS Safety Report 9670298 (Version 1)
Quarter: 2013Q4

REPORT INFORMATION
  Report Type: Report from Study
  Country: DE (occurrence: UY)
  Receive Date: 20131105
  Receipt Date: 20131105
  Transmission Date: 20140711
  Serious: Yes (Death)
  Sender: FDA-Public Use
  Company Number: DE-ACTELION-A-NJ2013-90825

PATIENT
  Age: 46 Year
  Sex: Female

DRUGS (9)
  1. VENTAVIS [Suspect]
     Indication: PRODUCT USED FOR UNKNOWN INDICATION
     Dosage: UNK
     Route: 055
     Dates: start: 201003, end: 201310
  2. TRACLEER [Concomitant]
  3. DIGOXIN [Concomitant]
  4. WARFARIN [Concomitant]
  5. SILDENAFIL [Concomitant]
  6. OMEPRAZOLE [Concomitant]
  7. SERTRALINE [Concomitant]
  8. FUROSEMIDA [Concomitant]
  9. ESPIRONOLACTONA [Concomitant]

REACTIONS (2)
  - Sepsis [Fatal]
  - Disease progression [Fatal]
